FAERS Safety Report 6844467-8 (Version None)
Quarter: 2010Q3

REPORT INFORMATION
  Report Type: 
  Country: None (occurrence: None)
  Receive Date: 20100713
  Receipt Date: 20100630
  Transmission Date: 20110219
  Serious: Yes (Other)
  Sender: FDA-Public Use
  Company Number: 2010P1000066

PATIENT
  Age: 77 Year
  Sex: Female
  Weight: 72.5755 kg

DRUGS (4)
  1. LOVASTATIN [Suspect]
     Indication: BLOOD CHOLESTEROL INCREASED
     Dosage: 10 MG;HS;PO
     Route: 048
     Dates: start: 20100501
  2. PREDNISONE [Concomitant]
  3. ATACAND [Concomitant]
  4. CARVEDILOL [Concomitant]

REACTIONS (5)
  - AMAUROSIS FUGAX [None]
  - BLINDNESS UNILATERAL [None]
  - LOSS OF CONSCIOUSNESS [None]
  - MUSCLE SPASMS [None]
  - RETINAL ARTERY OCCLUSION [None]
